FAERS Safety Report 17546630 (Version 1)
Quarter: 2020Q1

REPORT INFORMATION
  Report Type: Spontaneous
  Country: US (occurrence: US)
  Receive Date: 20200316
  Receipt Date: 20200316
  Transmission Date: 20200409
  Serious: No
  Sender: FDA-Public Use
  Company Number: US-SA-2020SA066132

PATIENT
  Age: 33 Year
  Sex: Male

DRUGS (1)
  1. DUPIXENT [Suspect]
     Active Substance: DUPILUMAB
     Indication: DERMATITIS ALLERGIC
     Dosage: 300 MG/2ML, QOW
     Route: 058
     Dates: start: 20191010

REACTIONS (3)
  - Nasopharyngitis [Recovered/Resolved]
  - Pyrexia [Unknown]
  - Productive cough [Recovered/Resolved]
